FAERS Safety Report 6563806-9 (Version None)
Quarter: 2010Q1

REPORT INFORMATION
  Report Type: 
  Country: None (occurrence: None)
  Receive Date: 20100130
  Receipt Date: 20091222
  Transmission Date: 20100710
  Serious: No
  Sender: FDA-Public Use
  Company Number: US-ABBOTT-09P-163-0616768-00

PATIENT
  Sex: Female
  Weight: 68.1 kg

DRUGS (11)
  1. HUMIRA [Suspect]
     Indication: CROHN'S DISEASE
     Route: 058
     Dates: start: 20090701, end: 20091101
  2. HUMIRA [Suspect]
     Route: 058
     Dates: start: 20091101
  3. LIPITOR [Concomitant]
     Indication: BLOOD CHOLESTEROL INCREASED
     Route: 048
  4. RESTASIS [Concomitant]
     Indication: STEVENS-JOHNSON SYNDROME
     Route: 047
  5. LUNESTA [Concomitant]
     Indication: INSOMNIA
     Route: 048
  6. AMBIEN [Concomitant]
     Indication: INSOMNIA
     Dosage: ALTERNATING WITH LUNESTA
     Route: 048
  7. PREMPRO [Concomitant]
     Indication: HORMONE REPLACEMENT THERAPY
     Dosage: LOW DOSE 1 IN 1 D
     Route: 048
  8. NEURONTIN [Concomitant]
     Indication: ANXIETY
     Route: 048
  9. SEROQUEL [Concomitant]
     Indication: ANXIETY
     Route: 048
  10. PAXIL [Concomitant]
     Indication: DEPRESSION
     Route: 048
  11. ATIVAN [Concomitant]
     Indication: INSOMNIA
     Dosage: AT BEDTIME AS REQUIRED
     Route: 048

REACTIONS (2)
  - ADMINISTRATION SITE PAIN [None]
  - DRUG INEFFECTIVE [None]
